FAERS Safety Report 5099528-3 (Version None)
Quarter: 2006Q3

REPORT INFORMATION
  Report Type: 
  Country: None (occurrence: None)
  Receive Date: 20060908
  Receipt Date: 20060814
  Transmission Date: 20061208
  Serious: Yes (Death)
  Sender: FDA-Public Use
  Company Number: GBWYE702715AUG06

PATIENT
  Sex: Female
  Weight: 70 kg

DRUGS (7)
  1. ENBREL [Suspect]
     Indication: ERYTHRODERMIC PSORIASIS
     Route: 058
     Dates: start: 20060404, end: 20060414
  2. ACETAMINOPHEN W/ CODEINE [Concomitant]
     Dosage: 2 TABLETS AS NECESSARY
     Route: 048
     Dates: start: 20060401
  3. METHOTREXATE [Concomitant]
     Dosage: UNKNOWN
     Route: 065
     Dates: start: 20060301, end: 20060328
  4. EMOLLIENTS AND PROTECTIVES [Concomitant]
     Dosage: UNKNOWN
     Route: 061
     Dates: start: 20060301
  5. CYCLOSPORINE [Concomitant]
     Route: 048
     Dates: start: 20051001, end: 20060301
  6. BENDROFLUAZIDE [Concomitant]
     Indication: HYPERTENSION
     Route: 048
  7. BETNOVATE [Concomitant]
     Dosage: UNKNOWN
     Route: 061
     Dates: start: 20060301

REACTIONS (1)
  - SEPSIS [None]
